FAERS Safety Report 8044037-2 (Version None)
Quarter: 2012Q1

REPORT INFORMATION
  Report Type: 
  Country: None (occurrence: None)
  Receive Date: 20120113
  Receipt Date: 20120106
  Transmission Date: 20120608
  Serious: Yes (Hospitalization, Other)
  Sender: FDA-Public Use
  Company Number: US-BAYER-2011-098622

PATIENT
  Age: 22 Year
  Sex: Female
  Weight: 92.971 kg

DRUGS (4)
  1. YAZ [Suspect]
     Dosage: UNK
     Dates: start: 20070901, end: 20071201
  2. DEPO-PROVERA [Concomitant]
  3. NAPROXEN [Concomitant]
     Dosage: 500 MG, UNK
  4. YAZ [Suspect]
     Dosage: UNK
     Dates: start: 20090701

REACTIONS (4)
  - EMOTIONAL DISTRESS [None]
  - PAIN [None]
  - CHOLECYSTITIS [None]
  - GALLBLADDER DISORDER [None]
